FAERS Safety Report 9928651 (Version 1)
Quarter: 2014Q1

REPORT INFORMATION
  Report Type: Spontaneous
  Country: US (occurrence: None)
  Receive Date: 20140226
  Receipt Date: 20140226
  Transmission Date: 20141002
  Serious: Yes (Life-Threatening)
  Sender: FDA-Public Use
  Company Number: None

PATIENT
  Age: 70 Year
  Sex: Male
  Weight: 102.51 kg

DRUGS (10)
  1. HEPARIN 1000 UNITS/ML PORCINE [Suspect]
     Indication: CORONARY ARTERY BYPASS
     Dosage: 35 K UNITS IV
     Route: 042
     Dates: start: 20121215
  2. ASA [Concomitant]
  3. LIPITOR [Concomitant]
  4. METOPROLOL [Concomitant]
  5. PRILOSEC [Concomitant]
  6. ZYRTEC [Concomitant]
  7. LASIX [Concomitant]
  8. COZAAR [Concomitant]
  9. ALBUTEROL [Concomitant]
  10. APIDRA [Concomitant]

REACTIONS (2)
  - Hypotension [None]
  - Therapeutic response decreased [None]
